FAERS Safety Report 6877166-7 (Version None)
Quarter: 2010Q3

REPORT INFORMATION
  Report Type: 
  Country: None (occurrence: None)
  Receive Date: 20100727
  Receipt Date: 20100727
  Transmission Date: 20110219
  Serious: Yes (Life-Threatening, Hospitalization)
  Sender: FDA-Public Use
  Company Number: None

PATIENT
  Age: 82 Year
  Sex: Male

DRUGS (3)
  1. NAPROXEN [Suspect]
     Indication: PAIN
     Dosage: 500MG BID PO
     Route: 048
  2. ASPIRIN [Suspect]
     Indication: CARDIOVASCULAR DISORDER
     Dosage: 81MG DAILY PO
     Route: 048
  3. XALATAN OPHTH DROPS [Concomitant]

REACTIONS (5)
  - ASTHENIA [None]
  - DYSPNOEA EXERTIONAL [None]
  - GASTRIC ULCER [None]
  - PRESYNCOPE [None]
  - UPPER GASTROINTESTINAL HAEMORRHAGE [None]
